FAERS Safety Report 10684509 (Version 1)
Quarter: 2014Q4

REPORT INFORMATION
  Report Type: Spontaneous
  Country: US (occurrence: US)
  Receive Date: 20141231
  Receipt Date: 20141231
  Transmission Date: 20150529
  Serious: Yes (Other)
  Sender: FDA-Public Use
  Company Number: US-ACCORD-027849

PATIENT
  Sex: Male

DRUGS (1)
  1. LISINOPRIL ACCORD [Suspect]
     Active Substance: LISINOPRIL
     Indication: HYPERTENSION

REACTIONS (6)
  - Product substitution issue [Unknown]
  - Fatigue [Unknown]
  - Anger [Unknown]
  - Feeling hot [Unknown]
  - Headache [Unknown]
  - Drug ineffective [Unknown]
